FAERS Safety Report 24646873 (Version 2)
Quarter: 2025Q1

REPORT INFORMATION
  Report Type: Spontaneous
  Country: US (occurrence: US)
  Receive Date: 20241121
  Receipt Date: 20250107
  Transmission Date: 20250409
  Serious: No
  Sender: ROCHE
  Company Number: US-ROCHE-10000131888

PATIENT
  Age: 65 Year
  Sex: Female

DRUGS (3)
  1. XOLAIR PFS [Suspect]
     Active Substance: OMALIZUMAB
     Indication: Asthma
     Dosage: STRENGTH: 150 MG/ML
     Route: 058
     Dates: start: 202001
  2. XOLAIR PFS [Suspect]
     Active Substance: OMALIZUMAB
  3. TAKHZYRO [Concomitant]
     Active Substance: LANADELUMAB-FLYO

REACTIONS (7)
  - Peripheral swelling [Unknown]
  - Joint swelling [Unknown]
  - Headache [Unknown]
  - Nausea [Unknown]
  - Vomiting [Unknown]
  - Sensitive skin [Unknown]
  - Asthma [Unknown]

NARRATIVE: CASE EVENT DATE: 20241108
